FAERS Safety Report 10833630 (Version 1)
Quarter: 2015Q1

REPORT INFORMATION
  Report Type: Report from Study
  Country: US (occurrence: US)
  Receive Date: 20150219
  Receipt Date: 20150219
  Transmission Date: 20150721
  Serious: Yes (Hospitalization)
  Sender: FDA-Public Use
  Company Number: PHEH2015US003315

PATIENT
  Age: 52 Year

DRUGS (1)
  1. TASIGNA [Suspect]
     Active Substance: NILOTINIB
     Indication: PRODUCT USED FOR UNKNOWN INDICATION
     Dosage: 400 MG, BID
     Route: 048

REACTIONS (4)
  - Pain [Unknown]
  - Electrocardiogram abnormal [Unknown]
  - Hypersensitivity [Unknown]
  - Arteriospasm coronary [Unknown]

NARRATIVE: CASE EVENT DATE: 200902
